FAERS Safety Report 7237482-6 (Version None)
Quarter: 2011Q1

REPORT INFORMATION
  Report Type: 
  Country: None (occurrence: None)
  Receive Date: 20110113
  Receipt Date: 20101231
  Transmission Date: 20110831
  Serious: Yes (Hospitalization, Other)
  Sender: FDA-Public Use
  Company Number: AE 2011-001

PATIENT
  Age: 46 Year
  Sex: Female
  Weight: 122.4712 kg

DRUGS (2)
  1. PRIALT [Suspect]
     Indication: PAIN IN EXTREMITY
     Dosage: 0.08 UG/HR INTRATHECAL
     Route: 037
     Dates: start: 20100810, end: 20110106
  2. MORPHINE SULFATE [Suspect]
     Indication: PAIN IN EXTREMITY
     Dates: start: 20100810, end: 20110106

REACTIONS (4)
  - INFLUENZA LIKE ILLNESS [None]
  - DYSGEUSIA [None]
  - RESTLESSNESS [None]
  - INSOMNIA [None]
